FAERS Safety Report 6860692-4 (Version None)
Quarter: 2010Q3

REPORT INFORMATION
  Report Type: 
  Country: None (occurrence: None)
  Receive Date: 20100716
  Receipt Date: 20100709
  Transmission Date: 20110219
  Serious: Yes (Other)
  Sender: FDA-Public Use
  Company Number: TRP_06885_2010

PATIENT
  Sex: Female
  Weight: 68.4932 kg

DRUGS (3)
  1. RIBAVARIN [Suspect]
     Indication: HEPATITIS C
     Dosage: (DF)
     Dates: start: 20100201
  2. INFERGEN [Suspect]
     Indication: HEPATITIS C
     Dosage: (DF)
     Dates: start: 20100501
  3. PEGASYS [Suspect]
     Indication: PRODUCT USED FOR UNKNOWN INDICATION
     Dosage: (DF)
     Dates: end: 20100501

REACTIONS (13)
  - ABDOMINAL PAIN UPPER [None]
  - ASTHENIA [None]
  - BACK PAIN [None]
  - DIARRHOEA [None]
  - ERYTHEMA [None]
  - FACIAL PAIN [None]
  - FEELING ABNORMAL [None]
  - HYPOPHAGIA [None]
  - PHOTOSENSITIVITY REACTION [None]
  - SENSATION OF HEAVINESS [None]
  - SKIN EXFOLIATION [None]
  - SKIN WRINKLING [None]
  - SUICIDAL IDEATION [None]
